FAERS Safety Report 5842633-1 (Version None)
Quarter: 2008Q3

REPORT INFORMATION
  Report Type: 
  Country: None (occurrence: None)
  Receive Date: 20080808
  Receipt Date: 20080731
  Transmission Date: 20090109
  Serious: Yes (Hospitalization)
  Sender: FDA-Public Use
  Company Number: 2008BI019699

PATIENT
  Age: 62 Year
  Sex: Female

DRUGS (2)
  1. AVONEX [Suspect]
     Indication: MULTIPLE SCLEROSIS
     Dosage: 30 UG;QW;IM, 30 UG;QW;IM
     Route: 030
     Dates: start: 20010101, end: 20030101
  2. AVONEX [Suspect]
     Indication: MULTIPLE SCLEROSIS
     Dosage: 30 UG;QW;IM, 30 UG;QW;IM
     Route: 030
     Dates: start: 20030101

REACTIONS (3)
  - CLOSTRIDIAL INFECTION [None]
  - CYSTITIS [None]
  - MUSCULAR WEAKNESS [None]
